FAERS Safety Report 8906480 (Version 1)
Quarter: 2012Q4

REPORT INFORMATION
  Report Type: Spontaneous
  Country: DK (occurrence: None)
  Receive Date: 20121108
  Receipt Date: 20121108
  Transmission Date: 20130627
  Serious: Yes (Hospitalization)
  Sender: FDA-Public Use
  Company Number: 2012MA013150

PATIENT
  Age: 58 Year
  Sex: Female

DRUGS (1)
  1. ACYCLOVIR [Suspect]
     Dates: start: 20121009, end: 20121017

REACTIONS (2)
  - Medication error [None]
  - Pain [None]
